FAERS Safety Report 11833209 (Version 4)
Quarter: 2016Q1

REPORT INFORMATION
  Report Type: Report from Study
  Country: GB (occurrence: GB)
  Receive Date: 20151214
  Receipt Date: 20160328
  Transmission Date: 20160525
  Serious: Yes (Other)
  Sender: FDA-Public Use
  Company Number: GB-JNJFOC-20151209725

PATIENT
  Sex: Male

DRUGS (1)
  1. STELARA [Suspect]
     Active Substance: USTEKINUMAB
     Indication: PSORIASIS
     Dosage: 2 SYRINGES AT WEEK 4
     Route: 058
     Dates: start: 20150828

REACTIONS (6)
  - Lower respiratory tract infection [Recovered/Resolved]
  - Upper respiratory tract infection [Recovered/Resolved]
  - Back pain [Unknown]
  - Herpes zoster [Unknown]
  - Haematospermia [Unknown]
  - Lethargy [Unknown]

NARRATIVE: CASE EVENT DATE: 2015
